FAERS Safety Report 19134867 (Version 1)
Quarter: 2021Q2

REPORT INFORMATION
  Report Type: Spontaneous
  Country: GB (occurrence: GB)
  Receive Date: 20210414
  Receipt Date: 20210414
  Transmission Date: 20210717
  Serious: Yes (Other)
  Sender: FDA-Public Use
  Company Number: GB-TAKEDA-2021TJP016336

PATIENT
  Age: 63 Year
  Sex: Male
  Weight: 85 kg

DRUGS (8)
  1. COLCHICIN [Concomitant]
     Active Substance: COLCHICINE
     Dosage: UNK
  2. LACTULOSE. [Concomitant]
     Active Substance: LACTULOSE
     Dosage: UNK
  3. BISACODYL. [Concomitant]
     Active Substance: BISACODYL
     Dosage: UNK
  4. LANSOPRAZOLE. [Suspect]
     Active Substance: LANSOPRAZOLE
     Indication: GASTROOESOPHAGEAL REFLUX DISEASE
     Dosage: 15 MILLIGRAM, QD
     Route: 048
     Dates: start: 199103
  5. BECOTIDE [Concomitant]
     Active Substance: BECLOMETHASONE DIPROPIONATE
  6. FEBUXOSTAT. [Concomitant]
     Active Substance: FEBUXOSTAT
     Dosage: UNK
  7. NAPROXENE [NAPROXEN SODIUM] [Concomitant]
     Active Substance: NAPROXEN SODIUM
     Dosage: UNK
  8. VENTOLIN [GUAIFENESIN;SALBUTAMOL SULFATE] [Concomitant]
     Active Substance: ALBUTEROL\GUAIFENESIN
     Dosage: UNK

REACTIONS (2)
  - Breast mass [Unknown]
  - Gynaecomastia [Not Recovered/Not Resolved]

NARRATIVE: CASE EVENT DATE: 20210315
